FAERS Safety Report 6473270-6 (Version None)
Quarter: 2009Q4

REPORT INFORMATION
  Report Type: 
  Country: None (occurrence: None)
  Receive Date: 20091204
  Receipt Date: 20080602
  Transmission Date: 20100525
  Serious: Yes (Hospitalization)
  Sender: FDA-Public Use
  Company Number: US-ELI_LILLY_AND_COMPANY-US200805001935

PATIENT
  Sex: Male

DRUGS (8)
  1. HUMALOG [Suspect]
     Dosage: UNK, AS NEEDED
     Dates: start: 20070101
  2. LANTUS [Concomitant]
     Indication: DIABETES MELLITUS
     Dosage: 60 U, DAILY (1/D)
     Route: 030
  3. GLIMEPIRIDE [Concomitant]
     Indication: DIABETES MELLITUS
     Dosage: 4 MG, 2/D
     Route: 048
  4. AMLODIPINE [Concomitant]
     Dosage: 10 MG, DAILY (1/D)
     Route: 048
  5. ENALAPRIL [Concomitant]
     Dosage: 20 MG, 2/D
     Route: 048
  6. OXYCODONE HCL [Concomitant]
     Dosage: 5 MG, AS NEEDED
     Route: 048
  7. SURFAK [Concomitant]
     Dosage: 240 G, DAILY (1/D)
     Route: 048
  8. DIAZEPAM [Concomitant]
     Indication: MUSCLE SPASTICITY
     Dosage: 5 MG, AS NEEDED
     Route: 048

REACTIONS (2)
  - BLOOD GLUCOSE FLUCTUATION [None]
  - CARDIAC PACEMAKER INSERTION [None]
